FAERS Safety Report 22234164 (Version 1)
Quarter: 2023Q2

REPORT INFORMATION
  Report Type: Spontaneous
  Country: US (occurrence: None)
  Receive Date: 20230419
  Receipt Date: 20230419
  Transmission Date: 20230721
  Serious: Yes (Life-Threatening, Hospitalization, Disabling)
  Sender: FDA-Public Use
  Company Number: None

PATIENT
  Age: 67 Year
  Sex: Female

DRUGS (1)
  1. CETIRIZINE HYDROCHLORIDE [Suspect]
     Active Substance: CETIRIZINE HYDROCHLORIDE
     Indication: Rhinorrhoea
     Dosage: FREQUENCY : DAILY;?
     Route: 048
     Dates: start: 20230306

REACTIONS (4)
  - Headache [None]
  - Gait inability [None]
  - Respiratory failure [None]
  - Bronchitis [None]

NARRATIVE: CASE EVENT DATE: 20230307
